FAERS Safety Report 25312012 (Version 1)
Quarter: 2025Q2

REPORT INFORMATION
  Report Type: Spontaneous
  Country: US (occurrence: None)
  Receive Date: 20250514
  Receipt Date: 20250514
  Transmission Date: 20250717
  Serious: Yes (Other)
  Sender: FDA-CTU
  Company Number: None

PATIENT
  Sex: Female

DRUGS (4)
  1. AVONEX [Suspect]
     Active Substance: INTERFERON BETA-1A
     Dosage: FREQUENCY : WEEKLY;?
     Route: 030
     Dates: start: 20191228
  2. GABAPENTIN CAP 100MG [Concomitant]
  3. LEVOTHYROXIN TAB 50MCG [Concomitant]
  4. ROSUVASTATIN [Concomitant]
     Active Substance: ROSUVASTATIN

REACTIONS (2)
  - Surgery [None]
  - Intentional dose omission [None]
